FAERS Safety Report 12949563 (Version 1)
Quarter: 2016Q4

REPORT INFORMATION
  Report Type: Spontaneous
  Country: US (occurrence: US)
  Receive Date: 20161116
  Receipt Date: 20161116
  Transmission Date: 20170207
  Serious: No
  Sender: FDA-Public Use
  Company Number: US-BRISTOL-MYERS SQUIBB COMPANY-BMS-2016-095110

PATIENT
  Sex: Male
  Weight: 27.21 kg

DRUGS (1)
  1. ABILIFY [Suspect]
     Active Substance: ARIPIPRAZOLE
     Indication: PRODUCT USED FOR UNKNOWN INDICATION
     Dosage: 1 TAB, QD
     Route: 048
     Dates: start: 2016

REACTIONS (3)
  - Lethargy [Unknown]
  - Drug administered to patient of inappropriate age [Unknown]
  - Increased appetite [Unknown]

NARRATIVE: CASE EVENT DATE: 2016
